FAERS Safety Report 14733005 (Version 1)
Quarter: 2018Q2

REPORT INFORMATION
  Report Type: Spontaneous
  Country: FR (occurrence: FR)
  Receive Date: 20180409
  Receipt Date: 20180409
  Transmission Date: 20180711
  Serious: Yes (Other)
  Sender: FDA-Public Use
  Company Number: FR-MERCK KGAA-2045336

PATIENT
  Age: 40 Year
  Sex: Female
  Weight: 52 kg

DRUGS (4)
  1. SERESTA (10 MILLIGRAM) [Concomitant]
     Route: 048
     Dates: start: 201704
  2. NOVOTHYROX [Suspect]
     Active Substance: LEVOTHYROXINE SODIUM
     Indication: THYROIDECTOMY
     Route: 048
     Dates: end: 20171003
  3. LAMICTAL (25 MILLIGRAM) [Concomitant]
     Route: 048
     Dates: start: 201704
  4. SEROPLEX (15 MILLIGRAM) [Concomitant]
     Route: 048

REACTIONS (8)
  - Weight decreased [Recovered/Resolved]
  - Impaired work ability [Recovered/Resolved]
  - Diffuse alopecia [Recovered/Resolved]
  - Arthralgia [Recovered/Resolved]
  - Asthenia [Recovered/Resolved]
  - Headache [Not Recovered/Not Resolved]
  - Vertigo [Recovered/Resolved]
  - Irritability [Recovered/Resolved]

NARRATIVE: CASE EVENT DATE: 2017
